FAERS Safety Report 16165320 (Version 2)
Quarter: 2019Q3

REPORT INFORMATION
  Report Type: Spontaneous
  Country: CH (occurrence: CH)
  Receive Date: 20190405
  Receipt Date: 20190729
  Transmission Date: 20191004
  Serious: Yes (Other)
  Sender: FDA-Public Use
  Company Number: CH-ASTRAZENECA-2019SE51690

PATIENT
  Age: 67 Year
  Sex: Female
  Weight: 70 kg

DRUGS (32)
  1. SEROQUEL [Suspect]
     Active Substance: QUETIAPINE FUMARATE
     Indication: SLEEP DISORDER
     Route: 048
     Dates: start: 201401, end: 20190206
  2. SEROQUEL [Suspect]
     Active Substance: QUETIAPINE FUMARATE
     Indication: WITHDRAWAL SYNDROME
     Route: 048
     Dates: start: 201401, end: 20190206
  3. IMUREK [Concomitant]
     Active Substance: AZATHIOPRINE
     Dosage: 2 X 50 MG
  4. ALDACTONE [Concomitant]
     Active Substance: SPIRONOLACTONE
     Dosage: 1 IN THE EVENING
  5. CLOPIDOGREL [Concomitant]
     Active Substance: CLOPIDOGREL BISULFATE
     Dosage: 75 1/DAY
  6. PROLIA 6 [Concomitant]
  7. TARGIN [Concomitant]
     Active Substance: NALOXONE HYDROCHLORIDE\OXYCODONE HYDROCHLORIDE
     Dosage: 20MG/10MG 2-3 X 1
  8. NORMISON [Concomitant]
     Dosage: 20 1 EVENING
  9. CONDROSULF [Concomitant]
     Active Substance: SODIUM CHONDROITIN SULFATE
     Dosage: 800 1 (PAUSING)
  10. PRIORIN [Concomitant]
     Indication: ALOPECIA
     Dosage: 2 X 1
  11. CIPRALEX [Concomitant]
     Active Substance: ESCITALOPRAM OXALATE
     Dosage: 10 1 PER DAY IN THE EVENING
  12. SYSTEM CONTI [Concomitant]
     Dosage: 1/2 2X WEEKLY
  13. NOVALGIN [Concomitant]
     Dosage: 500 UP TO 3 X 1/DAY
  14. SEROQUEL [Suspect]
     Active Substance: QUETIAPINE FUMARATE
     Indication: WITHDRAWAL SYNDROME
     Route: 048
     Dates: start: 20190206
  15. CO DAFALGAN [Concomitant]
     Dosage: 3 X 1/DAY
  16. BENLYSTA [Concomitant]
     Active Substance: BELIMUMAB
     Dosage: 4 WEEKLY
     Dates: start: 201611
  17. CALCIMAGON D3 [Concomitant]
     Active Substance: CALCIUM\CHOLECALCIFEROL
     Dosage: 500 MG 1/DAY
  18. LEXOTANIL [Concomitant]
     Active Substance: BROMAZEPAM
     Dosage: 1.5 ONLY IN RESERVE
  19. TORASEMIDE [Concomitant]
     Active Substance: TORSEMIDE
  20. ESOMEPRAZOLE. [Concomitant]
     Active Substance: ESOMEPRAZOLE MAGNESIUM
     Dosage: 40 2 X 1/DAY
  21. CREON [Concomitant]
     Active Substance: PANCRELIPASE AMYLASE\PANCRELIPASE LIPASE\PANCRELIPASE PROTEASE
     Dosage: 25^000 UP TO 3 X 1 BEFOR THE MEAL
  22. ALUCOL [Concomitant]
     Active Substance: ALUMINUM HYDROXIDE\MAGNESIUM HYDROXIDE
     Dosage: IN RESERVE
  23. ANTIDRY [Concomitant]
  24. CENTRUM [Concomitant]
     Active Substance: VITAMINS
     Dosage: 1 DAILY
  25. MOTILIUM UND SPASMOCANULASE [Concomitant]
     Dosage: AS REQUIRED UP TO 3 X 1
  26. ATARAX [Concomitant]
     Active Substance: HYDROXYZINE HYDROCHLORIDE
     Dosage: 1X/DAY (EVENINGS)
  27. SEROQUEL [Suspect]
     Active Substance: QUETIAPINE FUMARATE
     Indication: SLEEP DISORDER
     Route: 048
     Dates: start: 20190206
  28. MEDROL [Concomitant]
     Active Substance: METHYLPREDNISOLONE
  29. LOPRESOR RETARD [Concomitant]
  30. REPATHA [Concomitant]
     Active Substance: EVOLOCUMAB
     Dosage: 14 DAILY
     Dates: start: 201705
  31. ACIDUM FOLICUM [Concomitant]
     Active Substance: FOLIC ACID
     Dosage: 5 MG 1 DAILY
  32. CETIRIZINE [Concomitant]
     Active Substance: CETIRIZINE HYDROCHLORIDE
     Dosage: 1 IN THE MORNING

REACTIONS (12)
  - Aphasia [Recovered/Resolved]
  - Renal failure [Unknown]
  - Fatigue [Recovered/Resolved]
  - Cataract [Unknown]
  - Withdrawal syndrome [Unknown]
  - Personality change [Recovered/Resolved]
  - Dementia [Recovered/Resolved]
  - Pneumonia [Unknown]
  - Aspiration [Recovered/Resolved]
  - Hallucination [Recovered/Resolved]
  - Paranoia [Recovered/Resolved]
  - Tremor [Recovered/Resolved]

NARRATIVE: CASE EVENT DATE: 201809
